FAERS Safety Report 4520416-2 (Version None)
Quarter: 2004Q4

REPORT INFORMATION
  Report Type: 
  Country: None (occurrence: None)
  Receive Date: 20041203
  Receipt Date: 20041122
  Transmission Date: 20050328
  Serious: Yes (Hospitalization)
  Sender: FDA-Public Use
  Company Number: 2004097200

PATIENT
  Age: 81 Year
  Sex: Male
  Weight: 76 kg

DRUGS (3)
  1. GABAPENTIN [Suspect]
     Indication: NEUROPATHIC PAIN
     Dosage: 900 MG (900 MG, 3 IN 1 D), ORAL
     Route: 048
     Dates: start: 20040811, end: 20040910
  2. ASPIRIN [Concomitant]
  3. NIFEDIPINE [Concomitant]

REACTIONS (1)
  - JAUNDICE CHOLESTATIC [None]
